FAERS Safety Report 17625219 (Version 1)
Quarter: 2020Q2

REPORT INFORMATION
  Report Type: Spontaneous
  Country: GB (occurrence: GB)
  Receive Date: 20200404
  Receipt Date: 20200404
  Transmission Date: 20200713
  Serious: Yes (Hospitalization, Other)
  Sender: FDA-Public Use
  Company Number: GB-AUROBINDO-AUR-APL-2020-016200

PATIENT
  Age: 66 Year
  Sex: Female

DRUGS (10)
  1. IPILIMUMAB [Suspect]
     Active Substance: IPILIMUMAB
     Indication: SMALL CELL LUNG CANCER METASTATIC
     Dosage: UNK, IN COMBINATION WITH NIVOLUMAB
     Route: 065
     Dates: start: 2017, end: 2017
  2. DOCUSATE [Concomitant]
     Active Substance: DOCUSATE
     Indication: PRODUCT USED FOR UNKNOWN INDICATION
     Dosage: UNK
     Route: 065
  3. OLANZAPINE. [Suspect]
     Active Substance: OLANZAPINE
     Dosage: UNK, RAPID TITRATION TO 20MG
     Route: 030
  4. DEXAMETHASONE. [Suspect]
     Active Substance: DEXAMETHASONE
     Indication: METASTASES TO CENTRAL NERVOUS SYSTEM
     Dosage: UNK
     Route: 065
  5. NIVOLUMAB [Suspect]
     Active Substance: NIVOLUMAB
     Dosage: UNK, TWO-WEEKLY NIVOLUMAB MONOTHERAPY
     Route: 065
     Dates: start: 2017, end: 2017
  6. OMEPRAZOLE. [Concomitant]
     Active Substance: OMEPRAZOLE
     Indication: PRODUCT USED FOR UNKNOWN INDICATION
     Dosage: 40 MILLIGRAM, ONCE A DAY
     Route: 065
  7. OLANZAPINE. [Suspect]
     Active Substance: OLANZAPINE
     Indication: MANIA
     Dosage: UNK, RAPID TITRATION TO 20MG
     Route: 048
  8. DEXAMETHASONE. [Suspect]
     Active Substance: DEXAMETHASONE
     Indication: SMALL CELL LUNG CANCER METASTATIC
     Dosage: HIGH DOSE
     Route: 065
  9. NIVOLUMAB [Suspect]
     Active Substance: NIVOLUMAB
     Indication: SMALL CELL LUNG CANCER METASTATIC
     Dosage: UNK, IN COMBINATION WITH IPILIMUMAB
     Route: 065
     Dates: start: 2017, end: 2017
  10. DALTEPARIN [Concomitant]
     Active Substance: DALTEPARIN
     Indication: PULMONARY EMBOLISM
     Dosage: UNK
     Route: 065
     Dates: start: 201712

REACTIONS (6)
  - Toxic leukoencephalopathy [Recovering/Resolving]
  - Insomnia [Unknown]
  - Immune-mediated encephalitis [Recovering/Resolving]
  - Mania [Recovering/Resolving]
  - Drug ineffective [Unknown]
  - Rash [Unknown]

NARRATIVE: CASE EVENT DATE: 2017
